FAERS Safety Report 7029780-6 (Version None)
Quarter: 2010Q4

REPORT INFORMATION
  Report Type: 
  Country: None (occurrence: None)
  Receive Date: 20101001
  Receipt Date: 20100921
  Transmission Date: 20110411
  Serious: Yes (Other)
  Sender: FDA-Public Use
  Company Number: 2008EU001559

PATIENT
  Age: 25 Year
  Sex: Male

DRUGS (3)
  1. PROTOPIC [Suspect]
     Indication: DERMATITIS ATOPIC
     Dosage: 0.1  %, BID, TOPICAL
     Route: 061
     Dates: end: 20080101
  2. PROTOPIC [Suspect]
     Indication: DERMATITIS ATOPIC
     Dosage: 0.1  %, BID, TOPICAL
     Route: 061
     Dates: start: 20080408, end: 20080619
  3. DEXERYL (WHITE SOFT PARAFFIN, PARAFFIN, LIQUID) [Concomitant]

REACTIONS (6)
  - CONDITION AGGRAVATED [None]
  - NEOPLASM MALIGNANT [None]
  - PLATELET COUNT INCREASED [None]
  - RED BLOOD CELL SEDIMENTATION RATE INCREASED [None]
  - SKIN PAPILLOMA [None]
  - TREATMENT FAILURE [None]
